FAERS Safety Report 6475528-3 (Version None)
Quarter: 2009Q4

REPORT INFORMATION
  Report Type: 
  Country: None (occurrence: None)
  Receive Date: 20091204
  Receipt Date: 20091127
  Transmission Date: 20100525
  Serious: Yes (Hospitalization, Other)
  Sender: FDA-Public Use
  Company Number: PHHO2009KR13751

PATIENT
  Sex: Male
  Weight: 64 kg

DRUGS (2)
  1. AFINITOR [Suspect]
     Indication: METASTATIC RENAL CELL CARCINOMA
     Dosage: 4 MG DAILY
     Route: 048
     Dates: start: 20090416, end: 20091113
  2. RADIOTHERAPY [Concomitant]

REACTIONS (6)
  - ABDOMINAL PAIN [None]
  - BACK PAIN [None]
  - CHOLECYSTITIS [None]
  - COUGH [None]
  - DYSPNOEA EXERTIONAL [None]
  - PNEUMONIA [None]
